FAERS Safety Report 12674759 (Version 3)
Quarter: 2016Q3

REPORT INFORMATION
  Report Type: Spontaneous
  Country: FR (occurrence: FR)
  Receive Date: 20160822
  Receipt Date: 20160829
  Transmission Date: 20161109
  Serious: Yes (Death)
  Sender: FDA-Public Use
  Company Number: FR-SA-2016SA152353

PATIENT
  Age: 69 Year
  Sex: Female
  Weight: 88 kg

DRUGS (14)
  1. ONDANSETRON [Concomitant]
     Active Substance: ONDANSETRON
     Dosage: 1 TABLET AM MORNING AND 1 TABLET ON EVENING
     Route: 065
  2. TAXOTERE [Suspect]
     Active Substance: DOCETAXEL
     Indication: BREAST CANCER
     Route: 065
     Dates: start: 20160806, end: 20160806
  3. AVLOCARDYL [Concomitant]
     Active Substance: PROPRANOLOL HYDROCHLORIDE
     Route: 065
     Dates: end: 20160802
  4. PRAVADUAL [Concomitant]
     Active Substance: ASPIRIN\PRAVASTATIN
     Route: 065
  5. KARDEGIC [Concomitant]
     Active Substance: ASPIRIN LYSINE
     Route: 065
  6. METHYLPREDNISOLONE. [Concomitant]
     Active Substance: METHYLPREDNISOLONE
     Dosage: 80 MG IV IN 20 ML OF NACL
     Route: 042
  7. AMAREL [Concomitant]
     Active Substance: GLIMEPIRIDE
     Route: 065
  8. TAXOTERE [Suspect]
     Active Substance: DOCETAXEL
     Indication: BREAST CANCER
     Dosage: TAXETERE 100 MG/M2 I E 135 MG
     Route: 065
     Dates: start: 20160726, end: 20160726
  9. METOCLOPRAMIDE. [Concomitant]
     Active Substance: METOCLOPRAMIDE
     Indication: NAUSEA
     Dosage: 10 MG BEFORE MEALS
     Route: 048
  10. DEXTROSE INFUSION FLUID 5% [Concomitant]
     Route: 042
  11. PREDNISOLONE. [Concomitant]
     Active Substance: PREDNISOLONE
     Route: 065
  12. GRANISETRON [Concomitant]
     Active Substance: GRANISETRON
     Dosage: 1 TABLET AM MORNING AND 1 TABLET ON EVENING
     Route: 065
  13. RILMENIDINE [Concomitant]
     Active Substance: RILMENIDINE
     Route: 065
  14. COTAREG [Concomitant]
     Active Substance: HYDROCHLOROTHIAZIDE\VALSARTAN
     Route: 065

REACTIONS (20)
  - Multiple organ dysfunction syndrome [Fatal]
  - Febrile bone marrow aplasia [Fatal]
  - Nausea [Fatal]
  - Psychomotor retardation [Fatal]
  - Mucosal inflammation [Fatal]
  - Somnolence [Fatal]
  - Oliguria [Fatal]
  - Intestinal perforation [Fatal]
  - Hypotension [Fatal]
  - Aspiration bronchial [Fatal]
  - Cough [Fatal]
  - Cardiac murmur [Fatal]
  - Infectious colitis [Fatal]
  - Diarrhoea [Fatal]
  - General physical health deterioration [Fatal]
  - Pyrexia [Fatal]
  - Septic shock [Fatal]
  - Acute kidney injury [Fatal]
  - Dysuria [Fatal]
  - Respiratory distress [Fatal]

NARRATIVE: CASE EVENT DATE: 20160804
